FAERS Safety Report 10313346 (Version 1)
Quarter: 2014Q3

REPORT INFORMATION
  Report Type: Spontaneous
  Country: US (occurrence: None)
  Receive Date: 20140716
  Receipt Date: 20140716
  Transmission Date: 20150326
  Serious: Yes (Other)
  Sender: FDA-Public Use
  Company Number: 2014US00709

PATIENT
  Sex: Female

DRUGS (3)
  1. DOCETAXEL (DOCETAXEL) [Suspect]
     Active Substance: DOCETAXEL
     Indication: OVARIAN CANCER RECURRENT
     Dosage: 75 MG/M2, EVERY 21 DAYS FOR UP TO 6 CYCLES, INTRAVENOUS
     Route: 042
  2. CARBOPLATIN (CARBOPLATIN) [Suspect]
     Active Substance: CARBOPLATIN
     Indication: OVARIAN CANCER RECURRENT
     Dosage: 5 AUC, EVERY 21 DAYS FOR UP TO 6 CYCLES, INTRAVENOUS
     Route: 042
  3. PHIL-12/PPC (PHIL-12/PPC) [Suspect]
     Active Substance: INVESTIGATIONAL PRODUCT
     Indication: OVARIAN CANCER RECURRENT
     Dosage: 24 MG/M2, EVERY 10-11 DAYS FOR A TOTAL OF UP TO 8 TREATMENTS, INTRAPERITONEAL
     Route: 033

REACTIONS (4)
  - Chills [None]
  - Hypotension [None]
  - Blood pressure decreased [None]
  - Cytokine release syndrome [None]
